FAERS Safety Report 7228120-7 (Version None)
Quarter: 2011Q1

REPORT INFORMATION
  Report Type: 
  Country: None (occurrence: None)
  Receive Date: 20110112
  Receipt Date: 20110112
  Transmission Date: 20110831
  Serious: Yes (Other)
  Sender: FDA-Public Use
  Company Number: None

PATIENT
  Sex: Female
  Weight: 79.3795 kg

DRUGS (1)
  1. PROPOXYPHENE HYDROCHLORIDE [Suspect]
     Indication: BACK PAIN
     Dosage: 100-650 4 PER DAY
     Dates: start: 20000101, end: 20100101

REACTIONS (4)
  - PRODUCT QUALITY ISSUE [None]
  - INADEQUATE ANALGESIA [None]
  - CHEST PAIN [None]
  - ARRHYTHMIA [None]
